FAERS Safety Report 24744614 (Version 1)
Quarter: 2024Q4

REPORT INFORMATION
  Report Type: Spontaneous
  Country: ES (occurrence: ES)
  Receive Date: 20241217
  Receipt Date: 20241217
  Transmission Date: 20250115
  Serious: Yes (Death, Hospitalization)
  Sender: TEVA
  Company Number: None

PATIENT
  Age: 69 Year
  Sex: Female

DRUGS (1)
  1. AMOXICILLIN\CLAVULANIC ACID [Suspect]
     Active Substance: AMOXICILLIN\CLAVULANIC ACID
     Indication: Respiratory tract infection
     Dosage: 1-1-1; AMOXICILLIN/CLAVULANIC ACID 875 MG/125 MG 20 TABLETS
     Route: 048
     Dates: start: 20240222, end: 20240228

REACTIONS (6)
  - Autoimmune disorder [Fatal]
  - Immune thrombocytopenia [Fatal]
  - Anaemia [Fatal]
  - Renal failure [Fatal]
  - Enteritis [Fatal]
  - Hepatitis cholestatic [Fatal]

NARRATIVE: CASE EVENT DATE: 20240302
